FAERS Safety Report 24285725 (Version 1)
Quarter: 2024Q3

REPORT INFORMATION
  Report Type: Spontaneous
  Country: US (occurrence: None)
  Receive Date: 20240904
  Receipt Date: 20240904
  Transmission Date: 20241016
  Serious: No
  Sender: Public
  Company Number: None

PATIENT
  Age: 42 Year
  Sex: Female
  Weight: 49.5 kg

DRUGS (4)
  1. DYSPORT [Suspect]
     Active Substance: ABOBOTULINUMTOXINA
     Indication: Skin wrinkling
     Dosage: OTHER QUANTITY : 10 UNITS;?
     Route: 058
     Dates: start: 20240628
  2. DYSPORT [Suspect]
     Active Substance: ABOBOTULINUMTOXINA
     Indication: Skin cosmetic procedure
  3. Nutrafol Hormone Balance [Concomitant]
  4. Vital Collagen Powder [Concomitant]

REACTIONS (8)
  - Palpitations [None]
  - Formication [None]
  - Paraesthesia [None]
  - Anxiety [None]
  - Panic attack [None]
  - Muscle twitching [None]
  - Blepharospasm [None]
  - Hypoaesthesia [None]

NARRATIVE: CASE EVENT DATE: 20240715
